FAERS Safety Report 22311146 (Version 1)
Quarter: 2023Q2

REPORT INFORMATION
  Report Type: Spontaneous
  Country: US (occurrence: US)
  Receive Date: 20230511
  Receipt Date: 20230511
  Transmission Date: 20230721
  Serious: No
  Sender: FDA-Public Use
  Company Number: US-Cardinal Health 414-NPHS-AE-22-26

PATIENT
  Age: 48 Year
  Sex: Female
  Weight: 137.0 kg

DRUGS (3)
  1. KIT FOR THE PREPARATION OF TECHNETIUM TC99M SESTAMIBI [Suspect]
     Active Substance: TECHNETIUM TC-99M SESTAMIBI
     Indication: Scan myocardial perfusion
     Dosage: CARDIAC STRESS
     Route: 065
     Dates: start: 20221110, end: 20221110
  2. KIT FOR THE PREPARATION OF TECHNETIUM TC99M SESTAMIBI [Suspect]
     Active Substance: TECHNETIUM TC-99M SESTAMIBI
     Indication: Scan myocardial perfusion
     Dosage: THE REPORTER STATED THE REST DOSING DETAILS-SESTAMIBI 9.68 MCI GIVEN AT 9:11 AM
     Route: 042
     Dates: start: 20221110, end: 20221110
  3. KIT FOR THE PREPARATION OF TECHNETIUM TC99M SESTAMIBI [Suspect]
     Active Substance: TECHNETIUM TC-99M SESTAMIBI
     Indication: Scan myocardial perfusion
     Dosage: THE REPORTER STATED THE STRESS DOSING DETAILS-SESTAMIBI 28.0 MCI GIVEN AT 10:30 AM.
     Route: 042
     Dates: start: 20221110, end: 20221110

REACTIONS (5)
  - Cough [Recovered/Resolved]
  - Dyspnoea [Recovered/Resolved]
  - Rash [Recovered/Resolved]
  - Dysphonia [Unknown]
  - Throat tightness [Unknown]

NARRATIVE: CASE EVENT DATE: 20221110
